FAERS Safety Report 10933620 (Version 3)
Quarter: 2015Q2

REPORT INFORMATION
  Report Type: Spontaneous
  Country: US (occurrence: US)
  Receive Date: 20150320
  Receipt Date: 20150609
  Transmission Date: 20150821
  Serious: Yes (Other)
  Sender: FDA-Public Use
  Company Number: US-INCYTE CORPORATION-2015IN000875

PATIENT
  Sex: Male
  Weight: 97.51 kg

DRUGS (16)
  1. HYDRALAZINE [Concomitant]
     Active Substance: HYDRALAZINE HYDROCHLORIDE
  2. OMEPRAZOLE. [Concomitant]
     Active Substance: OMEPRAZOLE
  3. POTASSIUM [Concomitant]
     Active Substance: POTASSIUM
  4. CITRACAL + D                       /01438101/ [Concomitant]
  5. PRAMIPEXOLE [Concomitant]
     Active Substance: PRAMIPEXOLE
  6. NOVOLOG [Concomitant]
     Active Substance: INSULIN ASPART
  7. VITAMIN B12 [Concomitant]
     Active Substance: CYANOCOBALAMIN
  8. LOSARTAN [Concomitant]
     Active Substance: LOSARTAN
  9. FUROSEMIDE. [Concomitant]
     Active Substance: FUROSEMIDE
  10. METOPROLOL TARTRATE. [Concomitant]
     Active Substance: METOPROLOL TARTRATE
  11. PRADAXA [Concomitant]
     Active Substance: DABIGATRAN ETEXILATE MESYLATE
  12. FLOVENT [Concomitant]
     Active Substance: FLUTICASONE PROPIONATE
  13. LANTUS [Concomitant]
     Active Substance: INSULIN GLARGINE
  14. PRAVASTATIN [Concomitant]
     Active Substance: PRAVASTATIN\PRAVASTATIN SODIUM
  15. JAKAFI [Suspect]
     Active Substance: RUXOLITINIB
     Indication: MYELOFIBROSIS
     Dosage: 20 MG, BID
     Route: 048
     Dates: start: 20141105, end: 20150401
  16. DILTIAZEM [Concomitant]
     Active Substance: DILTIAZEM

REACTIONS (3)
  - Pneumonia [Unknown]
  - Dyspnoea exertional [Not Recovered/Not Resolved]
  - Fluid retention [Unknown]

NARRATIVE: CASE EVENT DATE: 2014
